FAERS Safety Report 10218803 (Version 1)
Quarter: 2014Q2

REPORT INFORMATION
  Report Type: Spontaneous
  Country: US (occurrence: US)
  Receive Date: 20140605
  Receipt Date: 20140605
  Transmission Date: 20141212
  Serious: No
  Sender: FDA-Public Use
  Company Number: US-009507513-1405USA006355

PATIENT
  Sex: Female

DRUGS (1)
  1. AFRIN NO DRIP SINUS [Suspect]
     Indication: PRODUCT USED FOR UNKNOWN INDICATION
     Dosage: UNK UNK, UNKNOWN
     Route: 045
     Dates: start: 20140428

REACTIONS (3)
  - Toothache [Unknown]
  - Drug administration error [Unknown]
  - Drug effect delayed [Unknown]
